FAERS Safety Report 19620490 (Version 1)
Quarter: 2021Q3

REPORT INFORMATION
  Report Type: Spontaneous
  Country: US (occurrence: US)
  Receive Date: 20210727
  Receipt Date: 20210727
  Transmission Date: 20211014
  Serious: Yes (Disabling, Other)
  Sender: FDA-Public Use
  Company Number: None

PATIENT
  Age: 75 Year
  Sex: Female

DRUGS (6)
  1. METOPROLOL SUCC ER 50MG TAB [Suspect]
     Active Substance: METOPROLOL SUCCINATE
     Indication: HYPERTENSION
     Dosage: ?          OTHER FREQUENCY:TAKE AT NIGHT;?
     Route: 048
     Dates: start: 202102, end: 20210628
  2. CENTRUM SILVER [Concomitant]
     Active Substance: MINERALS\VITAMINS
  3. AMLODIPINE [Concomitant]
     Active Substance: AMLODIPINE BESYLATE
  4. METOPROLOL SUCC ER 50MG TAB [Suspect]
     Active Substance: METOPROLOL SUCCINATE
     Indication: HYPERTENSION
     Route: 048
     Dates: start: 202011, end: 202102
  5. ATORVASTATIN [Concomitant]
     Active Substance: ATORVASTATIN
  6. TYLENOL [Concomitant]
     Active Substance: ACETAMINOPHEN

REACTIONS (3)
  - Flatulence [None]
  - Gastric disorder [None]
  - Product substitution issue [None]

NARRATIVE: CASE EVENT DATE: 20210628
